FAERS Safety Report 25753765 (Version 1)
Quarter: 2025Q3

REPORT INFORMATION
  Report Type: Spontaneous
  Country: JP (occurrence: JP)
  Receive Date: 20250903
  Receipt Date: 20250903
  Transmission Date: 20251020
  Serious: Yes (Life-Threatening, Hospitalization, Other)
  Sender: AAVIS PHARMACEUTICALS
  Company Number: JP-AVS-000211

PATIENT
  Age: 20 Year
  Sex: Female

DRUGS (3)
  1. LEVETIRACETAM [Suspect]
     Active Substance: LEVETIRACETAM
     Indication: Generalised tonic-clonic seizure
     Route: 042
  2. DIAZEPAM [Suspect]
     Active Substance: DIAZEPAM
     Indication: Generalised tonic-clonic seizure
     Route: 042
  3. ACTIVATED CHARCOAL [Concomitant]
     Active Substance: ACTIVATED CHARCOAL
     Indication: Toxicity to various agents
     Route: 065

REACTIONS (1)
  - Drug ineffective [Unknown]
